FAERS Safety Report 25390155 (Version 1)
Quarter: 2025Q2

REPORT INFORMATION
  Report Type: Spontaneous
  Country: US (occurrence: US)
  Receive Date: 20250603
  Receipt Date: 20250603
  Transmission Date: 20250716
  Serious: No
  Sender: MERCK SHARP & DOHME LLC
  Company Number: US-009507513-2284473

PATIENT
  Sex: Male
  Weight: 73.5 kg

DRUGS (31)
  1. WINREVAIR [Suspect]
     Active Substance: SOTATERCEPT-CSRK
     Indication: Product used for unknown indication
  2. WINREVAIR [Suspect]
     Active Substance: SOTATERCEPT-CSRK
  3. WINREVAIR [Suspect]
     Active Substance: SOTATERCEPT-CSRK
  4. WINREVAIR [Suspect]
     Active Substance: SOTATERCEPT-CSRK
  5. REMODULIN [Suspect]
     Active Substance: TREPROSTINIL
     Indication: Pulmonary arterial hypertension
     Route: 058
     Dates: start: 202501
  6. REMODULIN [Suspect]
     Active Substance: TREPROSTINIL
     Indication: Pulmonary arterial hypertension
     Route: 058
  7. REMODULIN [Suspect]
     Active Substance: TREPROSTINIL
     Indication: Pulmonary arterial hypertension
     Route: 058
  8. REMODULIN [Suspect]
     Active Substance: TREPROSTINIL
     Indication: Pulmonary arterial hypertension
     Route: 058
  9. REMODULIN [Suspect]
     Active Substance: TREPROSTINIL
     Indication: Pulmonary arterial hypertension
     Route: 058
     Dates: start: 20250128, end: 202504
  10. REMODULIN [Suspect]
     Active Substance: TREPROSTINIL
     Indication: Pulmonary arterial hypertension
     Route: 041
  11. REMODULIN [Suspect]
     Active Substance: TREPROSTINIL
     Indication: Pulmonary arterial hypertension
     Route: 041
     Dates: end: 202504
  12. ORENITRAM [Suspect]
     Active Substance: TREPROSTINIL
     Indication: Pulmonary arterial hypertension
     Route: 048
  13. ORENITRAM [Suspect]
     Active Substance: TREPROSTINIL
     Indication: Pulmonary arterial hypertension
     Route: 048
  14. ORENITRAM [Suspect]
     Active Substance: TREPROSTINIL
     Indication: Pulmonary arterial hypertension
     Route: 048
     Dates: start: 20240627
  15. JARDIANCE [Concomitant]
     Active Substance: EMPAGLIFLOZIN
  16. Ketamine HCL (Ketamine hydrochloride) [Concomitant]
  17. Lecithin (Glycine max extract) [Concomitant]
  18. LEXAPRO [Concomitant]
     Active Substance: ESCITALOPRAM OXALATE
  19. Clonidine (Clonidine hydrochloride) [Concomitant]
  20. KETOPROFEN [Concomitant]
     Active Substance: KETOPROFEN
  21. Lidocaine HCL (Lidocaine hydrochloride) [Concomitant]
  22. DIGOXIN [Concomitant]
     Active Substance: DIGOXIN
  23. FUROSEMIDE [Concomitant]
     Active Substance: FUROSEMIDE
  24. Amitriptyline HCL (Amitriptyline hydrochloride) [Concomitant]
  25. GABAPENTIN [Concomitant]
     Active Substance: GABAPENTIN
  26. Poloxamer (Poloxamer) Gel [Concomitant]
  27. SPIRONOLACTONE [Concomitant]
     Active Substance: SPIRONOLACTONE
  28. OPSUMIT [Concomitant]
     Active Substance: MACITENTAN
  29. Pramipexole dihydrochloride (Pramipexole dihydrochloride) [Concomitant]
  30. ESCITALOPRAM OXALATE [Concomitant]
     Active Substance: ESCITALOPRAM OXALATE
  31. OMEPRAZOLE [Concomitant]
     Active Substance: OMEPRAZOLE

REACTIONS (2)
  - Burning sensation [Not Recovered/Not Resolved]
  - Joint instability [Not Recovered/Not Resolved]

NARRATIVE: CASE EVENT DATE: 20250101
